FAERS Safety Report 19013268 (Version 1)
Quarter: 2021Q1

REPORT INFORMATION
  Report Type: Report from Study
  Country: IT (occurrence: IT)
  Receive Date: 20210315
  Receipt Date: 20210315
  Transmission Date: 20210420
  Serious: Yes (Other)
  Sender: FDA-Public Use
  Company Number: IT-PFIZER INC-2021236674

PATIENT
  Age: 53 Year
  Sex: Female
  Weight: 70 kg

DRUGS (16)
  1. DOCETAXEL PFIZER [Suspect]
     Active Substance: DOCETAXEL
     Indication: BREAST CANCER
     Dosage: 137.25 MG, CYCLIC (EVERY 3 WEEKS)
     Route: 042
     Dates: start: 20170130, end: 20170719
  2. LAPATINIB [Suspect]
     Active Substance: LAPATINIB
     Indication: BREAST CANCER
     Dosage: 1250 MG, 1X/DAY
     Route: 048
     Dates: start: 20181016, end: 20190410
  3. PERTUZUMAB. [Suspect]
     Active Substance: PERTUZUMAB
     Indication: BREAST CANCER
     Dosage: 840 MG, CYCLIC (EVERY 3 WEEKS)
     Route: 042
     Dates: start: 20170130, end: 20170130
  4. TRASTUZUMAB EMTANSINE [Suspect]
     Active Substance: ADO-TRASTUZUMAB EMTANSINE
     Indication: BREAST CANCER
     Dosage: 3.6 UG/KG, CYCLIC (EVERY 3 WEEKS)
     Route: 042
     Dates: start: 20180613, end: 20181001
  5. LUVION [CANRENONE] [Concomitant]
     Active Substance: CANRENONE
     Dosage: UNK
     Dates: start: 20200622
  6. FULVESTRANT. [Suspect]
     Active Substance: FULVESTRANT
     Indication: BREAST CANCER
     Dosage: 250 MG
     Route: 042
     Dates: start: 20191104, end: 20201221
  7. VINORELBINE [Suspect]
     Active Substance: VINORELBINE TARTRATE
     Indication: BREAST CANCER
     Dosage: 48 MG
     Route: 042
     Dates: start: 20190503, end: 20190730
  8. TRASTUZUMAB. [Suspect]
     Active Substance: TRASTUZUMAB
     Indication: BREAST CANCER
     Dosage: 560 MG, CYCLIC (EVERY 3 WEEKS)
     Route: 042
     Dates: start: 20170130, end: 20170130
  9. ERIBULIN MESYLATE [Suspect]
     Active Substance: ERIBULIN MESYLATE
     Indication: BREAST CANCER
     Dosage: 2.36 MG
     Route: 042
     Dates: start: 20190903, end: 20191023
  10. ZOLEDRONIC ACID [Concomitant]
     Active Substance: ZOLEDRONIC ACID
     Dosage: UNK
     Dates: start: 20191106
  11. LASIX [Concomitant]
     Active Substance: FUROSEMIDE
     Dosage: UNK
     Dates: start: 20200527
  12. LOSARTAN. [Concomitant]
     Active Substance: LOSARTAN
     Dosage: UNK
  13. CITALOPRAM [Concomitant]
     Active Substance: CITALOPRAM HYDROBROMIDE
     Dosage: UNK
  14. PALBOCICLIB [Suspect]
     Active Substance: PALBOCICLIB
     Indication: BREAST CANCER
     Dosage: 125 MG
     Route: 048
     Dates: start: 20191104
  15. CAPECITABINE. [Suspect]
     Active Substance: CAPECITABINE
     Indication: BREAST CANCER
     Dosage: 3000 MG
     Route: 048
     Dates: start: 20181016, end: 20190410
  16. EUTIROX [Concomitant]
     Active Substance: LEVOTHYROXINE SODIUM
     Dosage: UNK
     Dates: start: 20161219

REACTIONS (2)
  - Oedema [Recovered/Resolved]
  - Urinary retention [Recovered/Resolved]

NARRATIVE: CASE EVENT DATE: 20200527
